FAERS Safety Report 9198333 (Version 1)
Quarter: 2013Q1

REPORT INFORMATION
  Report Type: Spontaneous
  Country: US (occurrence: None)
  Receive Date: 20120709
  Receipt Date: 20120709
  Transmission Date: 20140127
  Serious: Yes (Hospitalization)
  Sender: FDA-Public Use
  Company Number: PHEH2011US010625

PATIENT
  Age: 35 Year
  Sex: Male

DRUGS (3)
  1. GLEEVEC [Suspect]
     Indication: ACUTE LYMPHOCYTIC LEUKAEMIA
     Dosage: (2 TABS OF 100 MG EACH AND 1 TAB OF 400 MG)
     Route: 048
     Dates: start: 20111123
  2. PREDNISONE (PREDNISONE) [Concomitant]
  3. CHEMOTHERAPEUTICS (NO INGREDIENTS/SUBSTANCES) [Concomitant]

REACTIONS (2)
  - Malaise [None]
  - Rash [None]
